FAERS Safety Report 8017700-7 (Version None)
Quarter: 2012Q1

REPORT INFORMATION
  Report Type: 
  Country: None (occurrence: None)
  Receive Date: 20120103
  Receipt Date: 20111221
  Transmission Date: 20120608
  Serious: Yes (Death, Hospitalization)
  Sender: FDA-Public Use
  Company Number: JP-JNJFOC-20100104963

PATIENT
  Sex: Female
  Weight: 65 kg

DRUGS (12)
  1. REMICADE [Suspect]
     Indication: RHEUMATOID ARTHRITIS
     Route: 042
     Dates: start: 20071011
  2. TACROLIMUS [Suspect]
     Route: 048
     Dates: end: 20071110
  3. PREDNISOLONE [Concomitant]
     Indication: RHEUMATOID ARTHRITIS
     Route: 048
  4. TACROLIMUS [Suspect]
     Route: 048
     Dates: start: 20070424
  5. RHEUMATREX [Suspect]
     Route: 048
     Dates: start: 20071214
  6. TACROLIMUS [Suspect]
     Route: 048
     Dates: end: 20080826
  7. REMICADE [Suspect]
     Route: 042
     Dates: start: 20061026
  8. AMARYL [Concomitant]
     Indication: DIABETES MELLITUS
     Route: 048
  9. TACROLIMUS [Suspect]
     Indication: RHEUMATOID ARTHRITIS
     Route: 048
     Dates: start: 20070724, end: 20080426
  10. REMICADE [Suspect]
     Route: 042
     Dates: start: 20080311
  11. REMICADE [Suspect]
     Route: 042
     Dates: start: 20071110
  12. RHEUMATREX [Suspect]
     Indication: RHEUMATOID ARTHRITIS
     Route: 048
     Dates: end: 20071110

REACTIONS (4)
  - URINARY TRACT INFECTION [None]
  - ARTHRALGIA [None]
  - PNEUMOCYSTIS JIROVECI PNEUMONIA [None]
  - PNEUMONIA [None]
